FAERS Safety Report 8121291 (Version 4)
Quarter: 2012Q4

REPORT INFORMATION
  Report Type: 
  Country: JP (occurrence: JP)
  Receive Date: 20110906
  Receipt Date: 20121023
  Transmission Date: 20130627
  Serious: Yes (Death, Hospitalization, Disabling)
  Sender: FDA-Public Use
  Company Number: JP-ROCHE-800243

PATIENT
  Age: 84 Year
  Sex: Male
  Weight: 65 kg

DRUGS (8)
  1. AVASTIN [Suspect]
     Indication: COLON CANCER METASTATIC
     Route: 041
     Dates: start: 20090625, end: 20090709
  2. ELPLAT [Concomitant]
     Route: 041
     Dates: start: 20090625, end: 20090709
  3. 5-FU [Concomitant]
     Route: 040
     Dates: start: 20090625, end: 20090709
  4. 5-FU [Concomitant]
     Route: 041
     Dates: start: 20090625, end: 200907
  5. ISOVORIN [Concomitant]
     Route: 041
     Dates: start: 20090625, end: 20090709
  6. BLOPRESS [Concomitant]
     Route: 048
  7. GRANISETRON [Concomitant]
     Route: 048
     Dates: start: 20090711, end: 20090713
  8. DECADRON [Concomitant]
     Route: 048
     Dates: start: 20090711, end: 20090712

REACTIONS (2)
  - Disease progression [Fatal]
  - Cerebral infarction [Not Recovered/Not Resolved]
